FAERS Safety Report 14393439 (Version 1)
Quarter: 2018Q1

REPORT INFORMATION
  Report Type: Spontaneous
  Country: US (occurrence: US)
  Receive Date: 20180114
  Receipt Date: 20180114
  Transmission Date: 20180509
  Serious: No
  Sender: FDA-Public Use
  Company Number: None

PATIENT
  Age: 15 Year
  Sex: Male
  Weight: 56.25 kg

DRUGS (6)
  1. FLUOXETINE [Concomitant]
     Active Substance: FLUOXETINE HYDROCHLORIDE
  2. ZALEPLON. [Concomitant]
     Active Substance: ZALEPLON
  3. RISPERDAL [Suspect]
     Active Substance: RISPERIDONE
     Indication: GENERALISED ANXIETY DISORDER
     Dosage: QUANTITY:30 TABLET(S); AT BEDTIME?
     Route: 048
  4. BUPROPION. [Concomitant]
     Active Substance: BUPROPION
  5. RISPERDAL [Suspect]
     Active Substance: RISPERIDONE
     Indication: OBSESSIVE-COMPULSIVE DISORDER
     Dosage: QUANTITY:30 TABLET(S); AT BEDTIME?
     Route: 048
  6. QUETIAPINE. [Concomitant]
     Active Substance: QUETIAPINE

REACTIONS (5)
  - Akathisia [None]
  - Anxiety [None]
  - Insomnia [None]
  - Hand-eye coordination impaired [None]
  - Dizziness [None]

NARRATIVE: CASE EVENT DATE: 20140720
